FAERS Safety Report 16805629 (Version 1)
Quarter: 2019Q3

REPORT INFORMATION
  Report Type: Report from Study
  Country: US (occurrence: US)
  Receive Date: 20190913
  Receipt Date: 20190913
  Transmission Date: 20191005
  Serious: No
  Sender: FDA-Public Use
  Company Number: PHEH2019US038060

PATIENT
  Sex: Male

DRUGS (3)
  1. AFINITOR [Interacting]
     Active Substance: EVEROLIMUS
     Dosage: 5 MG, QD
     Route: 048
  2. EPIDIOLEX [Interacting]
     Active Substance: CANNABIDIOL
     Indication: PRODUCT USED FOR UNKNOWN INDICATION
     Dosage: UNK
     Route: 065
  3. AFINITOR [Suspect]
     Active Substance: EVEROLIMUS
     Indication: ANGIOMYOLIPOMA
     Dosage: 7.5 MG, QD
     Route: 048
     Dates: start: 20120927

REACTIONS (1)
  - Drug interaction [Unknown]
